FAERS Safety Report 17796215 (Version 1)
Quarter: 2020Q2

REPORT INFORMATION
  Report Type: Spontaneous
  Country: GB (occurrence: GB)
  Receive Date: 20200517
  Receipt Date: 20200517
  Transmission Date: 20200714
  Serious: Yes (Hospitalization)
  Sender: FDA-Public Use
  Company Number: NVSC2020GB132652

PATIENT
  Age: 71 Year
  Sex: Male

DRUGS (3)
  1. CLARITHROMYCIN. [Interacting]
     Active Substance: CLARITHROMYCIN
     Indication: RESPIRATORY TRACT INFECTION
     Route: 065
     Dates: start: 20191026
  2. AMOXICILLIN. [Suspect]
     Active Substance: AMOXICILLIN
     Indication: RESPIRATORY TRACT INFECTION
     Route: 065
     Dates: start: 20191023
  3. WARFARIN [Interacting]
     Active Substance: WARFARIN
     Indication: PRODUCT USED FOR UNKNOWN INDICATION
     Route: 065

REACTIONS (4)
  - Abdominal wall haematoma [Unknown]
  - International normalised ratio increased [Unknown]
  - Drug interaction [Unknown]
  - Musculoskeletal chest pain [Unknown]

NARRATIVE: CASE EVENT DATE: 20191101
